FAERS Safety Report 6665146-6 (Version None)
Quarter: 2010Q2

REPORT INFORMATION
  Report Type: 
  Country: None (occurrence: None)
  Receive Date: 20100402
  Receipt Date: 20100324
  Transmission Date: 20101027
  Serious: Yes (Other)
  Sender: FDA-Public Use
  Company Number: DE-JNJFOC-20100307502

PATIENT
  Age: 6 Month
  Sex: Male

DRUGS (1)
  1. TOPAMAX [Suspect]
     Indication: CONVULSION
     Route: 065

REACTIONS (3)
  - ABDOMINAL PAIN [None]
  - OFF LABEL USE [None]
  - RENAL DISORDER [None]
